FAERS Safety Report 14608626 (Version 1)
Quarter: 2018Q1

REPORT INFORMATION
  Report Type: Spontaneous
  Country: US (occurrence: US)
  Receive Date: 20180306
  Receipt Date: 20180306
  Transmission Date: 20180509
  Serious: Yes (Death, Life-Threatening, Hospitalization, Disabling)
  Sender: FDA-Public Use
  Company Number: None

PATIENT
  Age: 24 Year
  Sex: Male
  Weight: 85.5 kg

DRUGS (2)
  1. CVS ANTI-DIARRHEAL (LOPERAMIDE) [Suspect]
     Active Substance: LOPERAMIDE
     Indication: SELF-MEDICATION
     Dosage: ?          QUANTITY:113 TABLET(S);OTHER FREQUENCY:ONCE;?
     Route: 048
     Dates: start: 20140728, end: 20140728
  2. CVS ANTI-DIARRHEAL (LOPERAMIDE) [Suspect]
     Active Substance: LOPERAMIDE
     Indication: DRUG WITHDRAWAL SYNDROME
     Dosage: ?          QUANTITY:113 TABLET(S);OTHER FREQUENCY:ONCE;?
     Route: 048
     Dates: start: 20140728, end: 20140728

REACTIONS (5)
  - Cardiac arrest [None]
  - Lung disorder [None]
  - Blood potassium increased [None]
  - Product use in unapproved indication [None]
  - Fear [None]

NARRATIVE: CASE EVENT DATE: 20140728
